FAERS Safety Report 23239510 (Version 1)
Quarter: 2023Q4

REPORT INFORMATION
  Report Type: Spontaneous
  Country: CN (occurrence: None)
  Receive Date: 20231129
  Receipt Date: 20231129
  Transmission Date: 20240110
  Serious: Yes (Other)
  Sender: FDA-Public Use
  Company Number: 2023A268420

PATIENT
  Age: 67 Year
  Sex: Female

DRUGS (2)
  1. TAGRISSO [Suspect]
     Active Substance: OSIMERTINIB
     Indication: Lung carcinoma cell type unspecified stage 0
     Route: 048
     Dates: start: 20231008, end: 20231108
  2. BEVACIZUMAB [Suspect]
     Active Substance: BEVACIZUMAB
     Indication: Lung carcinoma cell type unspecified stage 0
     Route: 041
     Dates: start: 20231008, end: 20231008

REACTIONS (3)
  - Cardiac disorder [Unknown]
  - Vein collapse [Unknown]
  - Cardiotoxicity [Unknown]

NARRATIVE: CASE EVENT DATE: 20231106
